FAERS Safety Report 8840134 (Version 3)
Quarter: 2012Q4

REPORT INFORMATION
  Report Type: 
  Country: US (occurrence: US)
  Receive Date: 20121015
  Receipt Date: 20121109
  Transmission Date: 20130627
  Serious: No
  Sender: FDA-Public Use
  Company Number: US-PFIZER INC-2012253888

PATIENT
  Age: 79 Year
  Sex: Female
  Weight: 68.93 kg

DRUGS (4)
  1. RAMIPRIL [Suspect]
     Indication: HYPERTENSION
     Dosage: UNK
     Dates: start: 2008, end: 2008
  2. ALTACE [Suspect]
     Indication: HYPERTENSION
     Dosage: 5 mg, once daily
     Route: 048
     Dates: start: 1992, end: 2008
  3. HYDROCHLOROTHIAZIDE [Concomitant]
     Indication: BLOOD PRESSURE HIGH
     Dosage: 25 mg, once daily
  4. METFORMIN [Concomitant]
     Indication: TYPE 2 DIABETES MELLITUS
     Dosage: 850 mg, twice daily

REACTIONS (5)
  - Hypersensitivity [Unknown]
  - Palpitations [Unknown]
  - Headache [Recovered/Resolved]
  - Body height decreased [Unknown]
  - Dizziness [Unknown]
